FAERS Safety Report 6240095-6 (Version None)
Quarter: 2009Q2

REPORT INFORMATION
  Report Type: 
  Country: None (occurrence: None)
  Receive Date: 20090623
  Receipt Date: 20090616
  Transmission Date: 20091009
  Serious: Yes (Hospitalization, Other)
  Sender: FDA-Public Use
  Company Number: NL-JNJFOC-20071200267

PATIENT
  Sex: Male

DRUGS (3)
  1. TRISPORAL [Suspect]
     Route: 065
  2. TRISPORAL [Suspect]
     Indication: FUNGAL INFECTION
     Route: 065
  3. KETOCONAZOLE [Concomitant]
     Route: 065

REACTIONS (2)
  - MEDICATION ERROR [None]
  - PANCREATITIS RELAPSING [None]
